FAERS Safety Report 8014739-2 (Version None)
Quarter: 2011Q4

REPORT INFORMATION
  Report Type: 
  Country: None (occurrence: None)
  Receive Date: 20111229
  Receipt Date: 20111220
  Transmission Date: 20120403
  Serious: Yes (Hospitalization, Other)
  Sender: FDA-Public Use
  Company Number: US-CELGENEUS-163-21880-11122180

PATIENT
  Sex: Female
  Weight: 61.2 kg

DRUGS (1)
  1. REVLIMID [Suspect]
     Dosage: 5 MILLIGRAM
     Route: 048
     Dates: start: 20110824, end: 20110101

REACTIONS (2)
  - JOINT SWELLING [None]
  - ARTHRALGIA [None]
